FAERS Safety Report 6138394-1 (Version None)
Quarter: 2009Q1

REPORT INFORMATION
  Report Type: 
  Country: None (occurrence: None)
  Receive Date: 20090331
  Receipt Date: 20090325
  Transmission Date: 20090719
  Serious: Yes (Hospitalization, Other)
  Sender: FDA-Public Use
  Company Number: DE-GENENTECH-271778

PATIENT
  Sex: Female

DRUGS (2)
  1. RAPTIVA [Suspect]
     Indication: PUSTULAR PSORIASIS
     Dosage: 0.53 ML, 1/WEEK
     Route: 058
     Dates: start: 20080925, end: 20081030
  2. RAPTIVA [Suspect]

REACTIONS (3)
  - ORAL CANDIDIASIS [None]
  - SALIVARY HYPERSECRETION [None]
  - THYROID ADENOMA [None]
